FAERS Safety Report 10269793 (Version 2)
Quarter: 2014Q3

REPORT INFORMATION
  Report Type: Spontaneous
  Country: FR (occurrence: FR)
  Receive Date: 20140701
  Receipt Date: 20140703
  Transmission Date: 20150326
  Serious: Yes (Other)
  Sender: FDA-Public Use
  Company Number: FR-JNJFOC-20140619787

PATIENT
  Age: 76 Year
  Sex: Male
  Weight: 85 kg

DRUGS (3)
  1. FOZITEC [Concomitant]
     Active Substance: FOSINOPRIL
     Route: 065
  2. ZYLORIC [Concomitant]
     Active Substance: ALLOPURINOL
     Route: 065
  3. XARELTO [Suspect]
     Active Substance: RIVAROXABAN
     Indication: PRODUCT USED FOR UNKNOWN INDICATION
     Route: 048
     Dates: start: 2013

REACTIONS (3)
  - Pruritus [Unknown]
  - Purpura senile [Unknown]
  - Skin exfoliation [Unknown]

NARRATIVE: CASE EVENT DATE: 20140603
